APPROVED DRUG PRODUCT: LEVONORGESTREL AND ETHINYL ESTRADIOL AND FERROUS FUMARATE
Active Ingredient: ETHINYL ESTRADIOL; LEVONORGESTREL
Strength: 0.02MG;0.1MG
Dosage Form/Route: TABLET;ORAL
Application: A214640 | Product #001 | TE Code: AB3
Applicant: XIROMED PHARMA ESPANA SL
Approved: Aug 16, 2023 | RLD: No | RS: No | Type: RX